FAERS Safety Report 23064284 (Version 1)
Quarter: 2023Q4

REPORT INFORMATION
  Report Type: Spontaneous
  Country: FR (occurrence: FR)
  Receive Date: 20231013
  Receipt Date: 20231013
  Transmission Date: 20240110
  Serious: Yes (Life-Threatening, Hospitalization)
  Sender: FDA-Public Use
  Company Number: None

PATIENT
  Age: 25 Year
  Sex: Female

DRUGS (8)
  1. ADRENALIN [Suspect]
     Active Substance: EPINEPHRINE
     Indication: Postoperative analgesia
     Dosage: UNK
     Route: 065
     Dates: start: 20230918, end: 20230918
  2. ACETAMINOPHEN [Concomitant]
     Active Substance: ACETAMINOPHEN
     Indication: Oocyte harvest
     Dosage: UNK
     Route: 065
     Dates: start: 20230918, end: 20230918
  3. SEVOFLURANE [Concomitant]
     Active Substance: SEVOFLURANE
     Indication: Oocyte harvest
     Dosage: 2 PERCENT
     Route: 065
     Dates: start: 20230918, end: 20230918
  4. SUFENTANIL [Concomitant]
     Active Substance: SUFENTANIL
     Indication: Oocyte harvest
     Dosage: 7.5 MILLIGRAM
     Route: 065
     Dates: start: 20230918, end: 20230918
  5. NEFOPAM HYDROCHLORIDE [Concomitant]
     Active Substance: NEFOPAM HYDROCHLORIDE
     Indication: Oocyte harvest
     Dosage: UNK
     Route: 065
     Dates: start: 20230918, end: 20230918
  6. PROPOFOL [Concomitant]
     Active Substance: PROPOFOL
     Indication: Oocyte harvest
     Dosage: 200 MILLIGRAM
     Route: 065
     Dates: start: 20230918, end: 20230918
  7. KETOPROFEN [Concomitant]
     Active Substance: KETOPROFEN
     Indication: Oocyte harvest
     Dosage: UNK
     Route: 065
     Dates: start: 20230918, end: 20230918
  8. DEXAMETHASONE [Concomitant]
     Active Substance: DEXAMETHASONE
     Indication: Oocyte harvest
     Dosage: 4 MILLIGRAM
     Route: 065
     Dates: start: 20230918, end: 20230918

REACTIONS (4)
  - Acute pulmonary oedema [Recovering/Resolving]
  - Product confusion [Recovered/Resolved]
  - Product administration error [Recovered/Resolved]
  - Wrong product administered [Recovered/Resolved]

NARRATIVE: CASE EVENT DATE: 20230918
